FAERS Safety Report 5453981-1 (Version None)
Quarter: 2007Q3

REPORT INFORMATION
  Report Type: 
  Country: None (occurrence: None)
  Receive Date: 20070917
  Receipt Date: 20070228
  Transmission Date: 20080115
  Serious: Yes (Other)
  Sender: FDA-Public Use
  Company Number: US-ASTRAZENECA-2006UW01463

PATIENT
  Sex: Male
  Weight: 144.5 kg

DRUGS (8)
  1. SEROQUEL [Suspect]
     Indication: SCHIZOPHRENIA
     Dosage: 25MG TO 200MG
     Route: 048
     Dates: start: 20000918, end: 20050101
  2. SEROQUEL [Suspect]
     Indication: BIPOLAR DISORDER
     Dosage: 25MG TO 200MG
     Route: 048
     Dates: start: 20000918, end: 20050101
  3. SEROQUEL [Suspect]
     Indication: BIPOLAR I DISORDER
     Dosage: 25MG TO 200MG
     Route: 048
     Dates: start: 20000918, end: 20050101
  4. RISPERDAL [Suspect]
  5. ZYPREXA [Suspect]
     Indication: SCHIZOPHRENIA
     Dates: start: 20000101, end: 20031006
  6. ZYPREXA [Suspect]
     Indication: BIPOLAR DISORDER
     Dates: start: 20000101, end: 20031006
  7. ZYPREXA [Suspect]
     Indication: BIPOLAR I DISORDER
     Dates: start: 20000101, end: 20031006
  8. GEODON [Concomitant]
     Dates: start: 20040501, end: 20041001

REACTIONS (6)
  - CARDIAC FAILURE CONGESTIVE [None]
  - LIVER DISORDER [None]
  - MUSCULOSKELETAL PAIN [None]
  - OBESITY [None]
  - SUICIDE ATTEMPT [None]
  - TYPE 2 DIABETES MELLITUS [None]
